FAERS Safety Report 10190165 (Version 2)
Quarter: 2014Q2

REPORT INFORMATION
  Report Type: Spontaneous
  Country: US (occurrence: US)
  Receive Date: 20140522
  Receipt Date: 20140611
  Transmission Date: 20141212
  Serious: Yes (Other)
  Sender: FDA-Public Use
  Company Number: US-PFIZER INC-2014138805

PATIENT
  Age: 69 Year
  Sex: Female

DRUGS (2)
  1. PREMARIN [Suspect]
     Indication: VULVOVAGINAL DRYNESS
     Dosage: UNK
     Route: 067
     Dates: end: 2014
  2. PREMARIN [Concomitant]
     Dosage: UNK

REACTIONS (2)
  - Vaginal haemorrhage [Unknown]
  - Gait disturbance [Unknown]
